FAERS Safety Report 5530634-2 (Version None)
Quarter: 2007Q4

REPORT INFORMATION
  Report Type: 
  Country: None (occurrence: None)
  Receive Date: 20071130
  Receipt Date: 20071119
  Transmission Date: 20080405
  Serious: Yes (Other)
  Sender: FDA-Public Use
  Company Number: B0486633A

PATIENT
  Age: 53 Year
  Sex: Male
  Weight: 75 kg

DRUGS (2)
  1. AVANDIA [Suspect]
     Dosage: 2MG PER DAY
     Route: 065
     Dates: start: 20060601, end: 20070501
  2. EZETROL [Concomitant]
     Dosage: 10MG PER DAY
     Route: 065
     Dates: start: 20060601

REACTIONS (1)
  - HYPOGLYCAEMIA [None]
